FAERS Safety Report 11692055 (Version 1)
Quarter: 2015Q4

REPORT INFORMATION
  Report Type: Spontaneous
  Country: US (occurrence: US)
  Receive Date: 20151103
  Receipt Date: 20151103
  Transmission Date: 20160304
  Serious: Yes (Other)
  Sender: FDA-Public Use
  Company Number: US-BEH-2015055225

PATIENT
  Sex: Female
  Weight: 81 kg

DRUGS (21)
  1. HIZENTRA [Suspect]
     Active Substance: HUMAN IMMUNOGLOBULIN G
     Indication: SECONDARY IMMUNODEFICIENCY
     Route: 058
  2. DIPHENHYDRAMINE. [Concomitant]
     Active Substance: DIPHENHYDRAMINE
  3. KARIVA [Concomitant]
     Active Substance: DESOGESTREL\ETHINYL ESTRADIOL
  4. SAVELLA [Concomitant]
     Active Substance: MILNACIPRAN HYDROCHLORIDE
  5. DONNATAL [Concomitant]
     Active Substance: ATROPINE SULFATE\HYOSCYAMINE SULFATE\PHENOBARBITAL\SCOPOLAMINE HYDROBROMIDE
  6. ATENOLOL. [Concomitant]
     Active Substance: ATENOLOL
  7. ALLEGRA [Concomitant]
     Active Substance: FEXOFENADINE HYDROCHLORIDE
  8. NEXIUM [Concomitant]
     Active Substance: ESOMEPRAZOLE MAGNESIUM
  9. ACETAMINOPHEN. [Concomitant]
     Active Substance: ACETAMINOPHEN
  10. LIDOCAINE- PRILOCAINE [Concomitant]
  11. CALTRATE+D [Concomitant]
  12. VERAMYST [Concomitant]
     Active Substance: FLUTICASONE FUROATE
  13. HYOSCYAMINE. [Concomitant]
     Active Substance: HYOSCYAMINE
  14. ENALAPRIL [Concomitant]
     Active Substance: ENALAPRIL
  15. LEVOTHYROXINE. [Concomitant]
     Active Substance: LEVOTHYROXINE
  16. MULTIVITAMIN [Concomitant]
     Active Substance: VITAMINS
  17. DOXYCYCLINE. [Concomitant]
     Active Substance: DOXYCYCLINE
  18. EPIPEN [Concomitant]
     Active Substance: EPINEPHRINE
  19. PRIMIDONE. [Concomitant]
     Active Substance: PRIMIDONE
  20. VITAMIN D [Concomitant]
     Active Substance: CHOLECALCIFEROL
  21. MOTRIN [Concomitant]
     Active Substance: IBUPROFEN

REACTIONS (1)
  - Respiratory tract infection [Unknown]
